FAERS Safety Report 10483430 (Version 1)
Quarter: 2014Q3

REPORT INFORMATION
  Report Type: Spontaneous
  Country: US (occurrence: None)
  Receive Date: 20140908
  Receipt Date: 20140908
  Transmission Date: 20150326
  Serious: Yes (Hospitalization, Other)
  Sender: FDA-Public Use
  Company Number: 398909

PATIENT
  Age: 68 Year
  Sex: Female

DRUGS (1)
  1. VICTOZA [Suspect]
     Active Substance: LIRAGLUTIDE
     Indication: TYPE 2 DIABETES MELLITUS
     Route: 058
     Dates: start: 20130905, end: 2013

REACTIONS (4)
  - Renal failure [None]
  - Nausea [None]
  - Anaemia [None]
  - Vomiting [None]

NARRATIVE: CASE EVENT DATE: 2013
